FAERS Safety Report 23936016 (Version 4)
Quarter: 2024Q3

REPORT INFORMATION
  Report Type: Report from Study
  Country: CA (occurrence: CA)
  Receive Date: 20240604
  Receipt Date: 20240904
  Transmission Date: 20241016
  Serious: Yes (Hospitalization, Other)
  Sender: JOHNSON AND JOHNSON
  Company Number: CA-JNJFOC-20240580501

PATIENT
  Age: 33 Year
  Sex: Female

DRUGS (3)
  1. STELARA [Suspect]
     Active Substance: USTEKINUMAB
     Indication: Crohn^s disease
     Route: 058
     Dates: start: 20230524
  2. STELARA [Suspect]
     Active Substance: USTEKINUMAB
     Indication: Chronic spontaneous urticaria
     Route: 058
     Dates: start: 20230309
  3. STELARA [Suspect]
     Active Substance: USTEKINUMAB
     Route: 058
     Dates: start: 20240828

REACTIONS (5)
  - Septic shock [Unknown]
  - Pneumonia [Unknown]
  - Polycystic ovarian syndrome [Not Recovered/Not Resolved]
  - Product dose omission issue [Unknown]
  - Tooth extraction [Unknown]

NARRATIVE: CASE EVENT DATE: 20240518
